FAERS Safety Report 8896221 (Version 1)
Quarter: 2012Q4

REPORT INFORMATION
  Report Type: 
  Country: BR (occurrence: BR)
  Receive Date: 20121108
  Receipt Date: 20121108
  Transmission Date: 20130627
  Serious: Yes (Other)
  Sender: FDA-Public Use
  Company Number: BR-PFIZER INC-2012273348

PATIENT
  Age: 46 Year
  Sex: Male

DRUGS (3)
  1. XALATAN [Suspect]
     Indication: GLAUCOMA
     Dosage: 3 ug (one drop in each eye), 1x/day
     Route: 047
     Dates: start: 1995
  2. XALATAN [Suspect]
     Dosage: UNK
     Route: 047
  3. ALPHAGAN [Concomitant]
     Indication: GLAUCOMA
     Dosage: UNK
     Dates: start: 201105

REACTIONS (5)
  - Visual acuity reduced [Unknown]
  - Eye disorder [Unknown]
  - Eye disorder [Unknown]
  - Eye irritation [Unknown]
  - Eye disorder [Unknown]
